FAERS Safety Report 5303231-1 (Version None)
Quarter: 2007Q2

REPORT INFORMATION
  Report Type: 
  Country: None (occurrence: None)
  Receive Date: 20070420
  Receipt Date: 20070411
  Transmission Date: 20071010
  Serious: Yes (Death, Other)
  Sender: FDA-Public Use
  Company Number: GB-ELI_LILLY_AND_COMPANY-GB200704002239

PATIENT
  Age: 46 Year
  Sex: Female

DRUGS (6)
  1. ZYPREXA [Suspect]
     Dosage: 30 MG, DAILY (1/D)
     Route: 048
     Dates: start: 20060630, end: 20060702
  2. ZYPREXA [Suspect]
     Dosage: 80 MG, DAILY (1/D)
     Route: 048
     Dates: start: 20060702
  3. ZYPREXA [Suspect]
     Dosage: 5 MG, UNK
     Route: 048
     Dates: start: 20060703, end: 20060706
  4. LACTULOSE [Concomitant]
     Dosage: 15 ML, UNK
     Route: 048
     Dates: start: 20060703, end: 20060706
  5. LORAZEPAM [Concomitant]
     Dosage: 1 MG, UNK
     Route: 030
     Dates: start: 20060702, end: 20060704
  6. PAROXETINE [Concomitant]
     Dosage: 30 MG, UNK
     Route: 048
     Dates: end: 20060706

REACTIONS (2)
  - DRUG LEVEL INCREASED [None]
  - PRESCRIBED OVERDOSE [None]
